FAERS Safety Report 6452773-4 (Version None)
Quarter: 2009Q4

REPORT INFORMATION
  Report Type: 
  Country: None (occurrence: None)
  Receive Date: 20091124
  Receipt Date: 20091116
  Transmission Date: 20100525
  Serious: Yes (Hospitalization)
  Sender: FDA-Public Use
  Company Number: CA-PFIZER INC-2009204596

PATIENT
  Age: 44 Year
  Sex: Female

DRUGS (2)
  1. DEPO-PROVERA [Suspect]
  2. GEN-CLOZAPINE [Suspect]
     Dosage: UNK
     Dates: start: 20090205

REACTIONS (1)
  - PULMONARY EMBOLISM [None]
